FAERS Safety Report 8110514-9 (Version None)
Quarter: 2012Q1

REPORT INFORMATION
  Report Type: 
  Country: None (occurrence: None)
  Receive Date: 20120202
  Receipt Date: 20110926
  Transmission Date: 20120608
  Serious: Yes (Other)
  Sender: FDA-Public Use
  Company Number: PHHY2011DE74873

PATIENT
  Sex: Male

DRUGS (1)
  1. SANDOSTATIN LAR [Suspect]
     Dosage: 200 UG, TID
     Route: 030

REACTIONS (3)
  - PAIN [None]
  - TRAUMATIC HAEMORRHAGE [None]
  - LIMB INJURY [None]
